FAERS Safety Report 4549215-2 (Version None)
Quarter: 2005Q1

REPORT INFORMATION
  Report Type: 
  Country: None (occurrence: None)
  Receive Date: 20050107
  Receipt Date: 20050107
  Transmission Date: 20050727
  Serious: Yes (Hospitalization)
  Sender: FDA-Public Use
  Company Number: None

PATIENT
  Age: 76 Year
  Sex: Male
  Weight: 81.6475 kg

DRUGS (2)
  1. UNASYN [Suspect]
     Indication: CELLULITIS
     Dosage: 3 GM Q 6 HOURS INTRAVENOUS
     Route: 042
     Dates: start: 20041230, end: 20041230
  2. UNASYN [Suspect]
     Indication: INTERTRIGO CANDIDA
     Dosage: 3 GM Q 6 HOURS INTRAVENOUS
     Route: 042
     Dates: start: 20041230, end: 20041230

REACTIONS (1)
  - DIARRHOEA [None]
